FAERS Safety Report 6883590-9 (Version None)
Quarter: 2010Q3

REPORT INFORMATION
  Report Type: 
  Country: None (occurrence: None)
  Receive Date: 20100729
  Receipt Date: 20100721
  Transmission Date: 20110219
  Serious: Yes (Hospitalization)
  Sender: FDA-Public Use
  Company Number: US-BAXTER-2010BH013187

PATIENT
  Sex: Male

DRUGS (2)
  1. DIANEAL [Suspect]
     Indication: RENAL FAILURE CHRONIC
     Route: 033
     Dates: start: 20100201, end: 20100301
  2. DIANEAL [Suspect]
     Route: 033
     Dates: start: 20100301, end: 20100101

REACTIONS (4)
  - ABDOMINAL ABSCESS [None]
  - ASTHENIA [None]
  - HYPOTENSION [None]
  - ULTRAFILTRATION FAILURE [None]
